FAERS Safety Report 20878451 (Version 4)
Quarter: 2022Q2

REPORT INFORMATION
  Report Type: Report from Study
  Country: JP (occurrence: JP)
  Receive Date: 20220526
  Receipt Date: 20220616
  Transmission Date: 20220721
  Serious: Yes (Death)
  Sender: FDA-Public Use
  Company Number: JP-Eisai-202202369_FYC-IIS_P_1

PATIENT
  Age: 15 Year
  Sex: Male
  Weight: 68 kg

DRUGS (2)
  1. FYCOMPA [Suspect]
     Active Substance: PERAMPANEL
     Indication: Epilepsy
     Route: 048
     Dates: start: 20211004, end: 20211210
  2. FYCOMPA [Suspect]
     Active Substance: PERAMPANEL
     Route: 048
     Dates: start: 20211211

REACTIONS (1)
  - Fall [Fatal]

NARRATIVE: CASE EVENT DATE: 20220519
